FAERS Safety Report 9341417 (Version 3)
Quarter: 2015Q3

REPORT INFORMATION
  Report Type: Spontaneous
  Country: JP (occurrence: JP)
  Receive Date: 20130611
  Receipt Date: 20150806
  Transmission Date: 20151125
  Serious: Yes (Other)
  Sender: FDA-Public Use
  Company Number: JP-ROCHE-1232909

PATIENT
  Age: 48 Year
  Sex: Male

DRUGS (18)
  1. ZEVALIN [Suspect]
     Active Substance: IBRITUMOMAB TIUXETAN
     Indication: B-CELL LYMPHOMA
     Dosage: 11.1 MBQ/KG
     Route: 042
     Dates: start: 20090812, end: 20090812
  2. NEUTROGIN [Concomitant]
     Active Substance: LENOGRASTIM
     Indication: NEUTROPHIL COUNT DECREASED
     Dosage: DAILY
     Route: 058
     Dates: start: 20090911
  3. CYCLOPHOSPHAMIDE. [Suspect]
     Active Substance: CYCLOPHOSPHAMIDE
     Indication: B-CELL LYMPHOMA
     Route: 065
  4. CALONAL [Concomitant]
     Active Substance: ACETAMINOPHEN
     Dosage: DAILY
     Route: 048
     Dates: start: 20090805, end: 20090812
  5. ZANTAC [Concomitant]
     Active Substance: RANITIDINE HYDROCHLORIDE
     Dosage: DAILY
     Route: 065
     Dates: start: 20090325
  6. DOXORUBICIN HYDROCHLORIDE. [Suspect]
     Active Substance: DOXORUBICIN HYDROCHLORIDE
     Indication: B-CELL LYMPHOMA
     Route: 065
  7. CLADRIBINE. [Suspect]
     Active Substance: CLADRIBINE
     Indication: B-CELL LYMPHOMA
     Route: 065
  8. RITUXIMAB [Suspect]
     Active Substance: RITUXIMAB
     Indication: B-CELL LYMPHOMA
     Route: 042
     Dates: start: 20090805
  9. ITRIZOLE [Concomitant]
     Active Substance: ITRACONAZOLE
     Indication: INFECTION PROPHYLAXIS
     Dosage: DAILY
     Route: 048
     Dates: start: 20090325
  10. NEO-MINOPHAGEN C [Concomitant]
     Active Substance: AMMONIUM GLYCYRRHIZATE
     Dosage: DAILY
     Route: 042
     Dates: start: 20090911, end: 20090911
  11. VINCRISTINE SULFATE. [Suspect]
     Active Substance: VINCRISTINE SULFATE
     Indication: B-CELL LYMPHOMA
     Route: 065
  12. PREDNISOLONE. [Suspect]
     Active Substance: PREDNISOLONE
     Indication: B-CELL LYMPHOMA
     Route: 065
  13. MITOXANTRONE HYDROCHLORIDE. [Suspect]
     Active Substance: MITOXANTRONE HYDROCHLORIDE
     Indication: B-CELL LYMPHOMA
     Route: 065
  14. ALLEGRA [Concomitant]
     Active Substance: FEXOFENADINE HYDROCHLORIDE
     Route: 048
     Dates: start: 20090805, end: 20090812
  15. RITUXIMAB [Suspect]
     Active Substance: RITUXIMAB
     Route: 042
     Dates: start: 20090812
  16. ZEVALIN [Suspect]
     Active Substance: IBRITUMOMAB TIUXETAN
     Indication: B-CELL LYMPHOMA
     Route: 042
     Dates: start: 20090805, end: 20090805
  17. BAKTAR [Concomitant]
     Active Substance: SULFAMETHOXAZOLE\TRIMETHOPRIM
     Indication: INFECTION PROPHYLAXIS
     Dosage: DAILY
     Route: 048
     Dates: end: 20090325
  18. SOLU-CORTEF [Concomitant]
     Active Substance: HYDROCORTISONE SODIUM SUCCINATE
     Dosage: DAILY
     Route: 042
     Dates: start: 20090911, end: 20091022

REACTIONS (1)
  - Myelodysplastic syndrome [Not Recovered/Not Resolved]

NARRATIVE: CASE EVENT DATE: 20120829
